FAERS Safety Report 16052537 (Version 1)
Quarter: 2019Q1

REPORT INFORMATION
  Report Type: Spontaneous
  Country: US (occurrence: US)
  Receive Date: 20190308
  Receipt Date: 20190308
  Transmission Date: 20190418
  Serious: Yes (Other)
  Sender: FDA-Public Use
  Company Number: US-TARO-2019TAR00159

PATIENT
  Age: 83 Year
  Sex: Male
  Weight: 81.63 kg

DRUGS (7)
  1. SIMVASTATIN. [Concomitant]
     Active Substance: SIMVASTATIN
     Indication: BLOOD CHOLESTEROL
  2. MUPIROCIN OINTMENT USP 2% [Suspect]
     Active Substance: MUPIROCIN
     Dosage: APPLIED INSIDE THE RIGHT NOSTRIL, TWICE
     Route: 045
     Dates: start: 20190222, end: 20190222
  3. MUPIROCIN OINTMENT USP 2% [Suspect]
     Active Substance: MUPIROCIN
     Indication: INFECTION PROPHYLAXIS
     Dosage: APPLIED INSIDE THE RIGHT NOSTRIL, ONCE
     Route: 045
     Dates: start: 20190221, end: 20190221
  4. UNSPECIFIED BLOOD PRESSURE MEDICATION [Concomitant]
     Active Substance: UNSPECIFIED INGREDIENT
  5. UNSPECIFIED BLOOD PRESSURE MEDICATION [Concomitant]
     Active Substance: UNSPECIFIED INGREDIENT
  6. OXYBUTYNIN. [Concomitant]
     Active Substance: OXYBUTYNIN CHLORIDE
  7. UNSPECIFIED ACID REFLUX MEDICATION [Concomitant]

REACTIONS (7)
  - Chest pain [Recovering/Resolving]
  - Heart rate decreased [Recovering/Resolving]
  - Movement disorder [Unknown]
  - Chest discomfort [Recovering/Resolving]
  - Nausea [Recovering/Resolving]
  - Product administered at inappropriate site [Recovered/Resolved]
  - Malaise [Unknown]

NARRATIVE: CASE EVENT DATE: 201902
